FAERS Safety Report 7080733-1 (Version None)
Quarter: 2010Q4

REPORT INFORMATION
  Report Type: 
  Country: None (occurrence: None)
  Receive Date: 20101103
  Receipt Date: 20101020
  Transmission Date: 20110411
  Serious: Yes (Hospitalization)
  Sender: FDA-Public Use
  Company Number: JP-JNJFOC-20100808485

PATIENT
  Sex: Female

DRUGS (7)
  1. LEVOFLOXACIN [Suspect]
     Indication: CHRONIC SINUSITIS
     Route: 048
  2. MUCODYNE [Concomitant]
     Indication: ACUTE SINUSITIS
     Route: 048
  3. MUCODYNE [Concomitant]
     Route: 048
  4. MUCODYNE [Concomitant]
     Indication: SINUSITIS
     Route: 048
  5. MUCODYNE [Concomitant]
     Route: 048
  6. KLARICID [Concomitant]
     Indication: SINUSITIS
     Route: 048
  7. SINGULAIR [Concomitant]
     Indication: RHINITIS ALLERGIC
     Route: 048

REACTIONS (7)
  - ALANINE AMINOTRANSFERASE INCREASED [None]
  - BLOOD LACTATE DEHYDROGENASE INCREASED [None]
  - COLLAGEN DISORDER [None]
  - DIARRHOEA [None]
  - ERYTHEMA MULTIFORME [None]
  - TOXIC SKIN ERUPTION [None]
  - VOMITING [None]
